FAERS Safety Report 13533512 (Version 2)
Quarter: 2017Q3

REPORT INFORMATION
  Report Type: Spontaneous
  Country: JP (occurrence: JP)
  Receive Date: 20170510
  Receipt Date: 20170712
  Transmission Date: 20171127
  Serious: Yes (Life-Threatening)
  Sender: FDA-Public Use
  Company Number: JP-BAYER-2017-082415

PATIENT
  Age: 89 Year
  Sex: Female

DRUGS (15)
  1. FIRSTCIN [Suspect]
     Active Substance: CEFOZOPRAN HYDROCHLORIDE
     Indication: GASTROENTERITIS STAPHYLOCOCCAL
     Dosage: 1 G, BID
     Route: 042
     Dates: start: 20170316, end: 20170322
  2. LIPITOR [Concomitant]
     Active Substance: ATORVASTATIN CALCIUM
     Dosage: UNK
     Route: 048
     Dates: end: 20170316
  3. NORVASC [Concomitant]
     Active Substance: AMLODIPINE BESYLATE
     Dosage: UNK
     Route: 048
     Dates: end: 20170316
  4. ADETPHOS [Concomitant]
     Active Substance: ADENOSINE TRIPHOSPHATE
     Dosage: UNK
     Route: 048
     Dates: end: 20170316
  5. TOFISOPAM [Concomitant]
     Active Substance: TOFISOPAM
     Dosage: UNK
     Route: 048
     Dates: end: 20170316
  6. VANCOMYCIN HYDROCHLORIDE. [Concomitant]
     Active Substance: VANCOMYCIN HYDROCHLORIDE
     Indication: GASTROENTERITIS STAPHYLOCOCCAL
     Dosage: UNK
     Dates: start: 20170329, end: 20170405
  7. SIGMART [Concomitant]
     Active Substance: NICORANDIL
     Dosage: UNK
     Route: 048
     Dates: end: 20170316
  8. HYALURONIC ACID [Concomitant]
     Active Substance: HYALURONIC ACID
     Dosage: UNK
     Route: 047
     Dates: end: 20170316
  9. DONEPEZIL HYDROCHLORIDE. [Concomitant]
     Active Substance: DONEPEZIL HYDROCHLORIDE
     Dosage: UNK
     Route: 048
     Dates: end: 20170316
  10. TAMOXIFEN [Concomitant]
     Active Substance: TAMOXIFEN
     Dosage: UNK
     Route: 048
     Dates: end: 20170316
  11. BLOPRESS [Concomitant]
     Active Substance: CANDESARTAN CILEXETIL
     Dosage: UNK
     Route: 048
     Dates: end: 20170316
  12. BETANIS [Concomitant]
     Active Substance: MIRABEGRON
     Dosage: UNK
     Route: 048
     Dates: end: 20170316
  13. CIPROXAN-I.V.300 [Suspect]
     Active Substance: CIPROFLOXACIN
     Indication: GASTROENTERITIS STAPHYLOCOCCAL
     Dosage: 300 MG, BID
     Route: 042
     Dates: start: 20170323, end: 20170329
  14. BETAHISTINE MESILATE [Concomitant]
     Active Substance: BETAHISTINE MESILATE
     Dosage: UNK
     Route: 048
     Dates: end: 20170316
  15. MAGNESIUM OXIDE. [Concomitant]
     Active Substance: MAGNESIUM OXIDE
     Dosage: UNK
     Route: 048
     Dates: end: 20170316

REACTIONS (2)
  - Disseminated intravascular coagulation [Not Recovered/Not Resolved]
  - Jaundice [Not Recovered/Not Resolved]

NARRATIVE: CASE EVENT DATE: 20170324
